FAERS Safety Report 8800547 (Version 1)
Quarter: 2012Q4

REPORT INFORMATION
  Report Type: 
  Country: AR (occurrence: AR)
  Receive Date: 20120921
  Receipt Date: 20120921
  Transmission Date: 20130627
  Serious: Yes (Hospitalization)
  Sender: FDA-Public Use
  Company Number: AR-AMGEN-ARGSP2012058538

PATIENT
  Age: 48 Year
  Sex: Female

DRUGS (2)
  1. ENBREL [Suspect]
     Indication: RHEUMATOID ARTHRITIS
     Dosage: 50 mg, weekly
     Route: 058
     Dates: start: 20110514
  2. T4 [Concomitant]
     Dosage: UNK

REACTIONS (3)
  - Pneumonia [Recovered/Resolved]
  - Aphonia [Not Recovered/Not Resolved]
  - Nasopharyngitis [Unknown]
